FAERS Safety Report 5350023-3 (Version None)
Quarter: 2007Q2

REPORT INFORMATION
  Report Type: 
  Country: None (occurrence: None)
  Receive Date: 20070510
  Receipt Date: 20061211
  Transmission Date: 20071010
  Serious: Yes (Hospitalization)
  Sender: FDA-Public Use
  Company Number: 2006S1000290

PATIENT
  Age: 59 Year
  Sex: Male
  Weight: 110.5 kg

DRUGS (6)
  1. CUBICIN [Suspect]
     Indication: ENTEROCOCCAL INFECTION
     Dosage: 4 MG/KG; Q24H; IV
     Route: 042
     Dates: start: 20061018, end: 20061101
  2. CUBICIN [Suspect]
     Indication: PATHOGEN RESISTANCE
     Dosage: 4 MG/KG; Q24H; IV
     Route: 042
     Dates: start: 20061018, end: 20061101
  3. CUBICIN [Suspect]
     Indication: POSTOPERATIVE WOUND INFECTION
     Dosage: 4 MG/KG; Q24H; IV
     Route: 042
     Dates: start: 20061018, end: 20061101
  4. CUBICIN [Suspect]
     Indication: WOUND INFECTION STAPHYLOCOCCAL
     Dosage: 4 MG/KG; Q24H; IV
     Route: 042
     Dates: start: 20061018, end: 20061101
  5. LISINOPRIL [Concomitant]
  6. VANCOMYCIN HCL [Concomitant]

REACTIONS (2)
  - BLOOD CREATINE PHOSPHOKINASE INCREASED [None]
  - SERRATIA BACTERAEMIA [None]
